FAERS Safety Report 25461056 (Version 1)
Quarter: 2025Q2

REPORT INFORMATION
  Report Type: Spontaneous
  Country: CN (occurrence: CN)
  Receive Date: 20250620
  Receipt Date: 20250620
  Transmission Date: 20250716
  Serious: Yes (Life-Threatening, Hospitalization)
  Sender: PFIZER
  Company Number: CN-PFIZER INC-PV202500072004

PATIENT
  Age: 64 Year
  Sex: Female

DRUGS (10)
  1. CYTARABINE [Suspect]
     Active Substance: CYTARABINE
     Indication: Acute myeloid leukaemia
     Dosage: 0.014 G, 2X/DAY
     Route: 058
     Dates: start: 20250207, end: 20250218
  2. ACLARUBICIN HYDROCHLORIDE [Suspect]
     Active Substance: ACLARUBICIN HYDROCHLORIDE
     Indication: Acute myeloid leukaemia
     Dosage: 100 MG, 1X/DAY (DAY 1)
     Route: 041
     Dates: start: 20250207, end: 20250207
  3. ACLARUBICIN HYDROCHLORIDE [Suspect]
     Active Substance: ACLARUBICIN HYDROCHLORIDE
     Dosage: 100 MG, 1X/DAY(DAY 2)
     Route: 041
     Dates: start: 20250208, end: 20250208
  4. ACLARUBICIN HYDROCHLORIDE [Suspect]
     Active Substance: ACLARUBICIN HYDROCHLORIDE
     Dosage: 100 MG, 1X/DAY (DAY 4)
     Route: 041
     Dates: start: 20250210, end: 20250210
  5. ACLARUBICIN HYDROCHLORIDE [Suspect]
     Active Substance: ACLARUBICIN HYDROCHLORIDE
     Dosage: 100 MG, 1X/DAY (DAY 6)
     Route: 041
     Dates: start: 20250212, end: 20250212
  6. ACLARUBICIN HYDROCHLORIDE [Suspect]
     Active Substance: ACLARUBICIN HYDROCHLORIDE
     Dosage: 100 MG, 1X/DAY (DAY 8)
     Route: 041
     Dates: start: 20250214, end: 20250214
  7. VENCLEXTA [Suspect]
     Active Substance: VENETOCLAX
     Indication: Acute myeloid leukaemia
     Dosage: 100 MG, 1X/DAY (3 DAY)
     Route: 048
     Dates: start: 20250207, end: 20250209
  8. VENCLEXTA [Suspect]
     Active Substance: VENETOCLAX
     Dates: start: 202502, end: 202502
  9. XOSPATA [Suspect]
     Active Substance: GILTERITINIB
     Indication: Acute myeloid leukaemia
     Dosage: 40 MG, 1X/DAY
     Route: 048
     Dates: start: 20250305, end: 20250605
  10. GRANULOCYTE COLONY-STIMULATING FACTOR NOS [Concomitant]
     Active Substance: GRANULOCYTE COLONY-STIMULATING FACTOR NOS
     Indication: Acute myeloid leukaemia
     Dosage: 300 UG, 1X/DAY
     Dates: start: 20250206

REACTIONS (3)
  - Myelosuppression [Not Recovered/Not Resolved]
  - Asthenia [Recovering/Resolving]
  - Eye haemorrhage [Unknown]

NARRATIVE: CASE EVENT DATE: 20250601
